FAERS Safety Report 15693695 (Version 1)
Quarter: 2018Q4

REPORT INFORMATION
  Report Type: Spontaneous
  Country: US (occurrence: US)
  Receive Date: 20181126
  Receipt Date: 20181126
  Transmission Date: 20190205
  Serious: Yes (Death)
  Sender: FDA-Public Use
  Company Number: None

PATIENT
  Age: 74 Year

DRUGS (8)
  1. OXYCODONE [Concomitant]
     Active Substance: OXYCODONE
  2. OXYCODONE [Suspect]
     Active Substance: OXYCODONE
  3. ALTEPLASE. [Suspect]
     Active Substance: ALTEPLASE
     Indication: THROMBOCYTOSIS
     Route: 042
     Dates: start: 20180622, end: 20180622
  4. METOPROLOL SUCCINATE. [Concomitant]
     Active Substance: METOPROLOL SUCCINATE
  5. POTASSIUM CHLORIDE. [Concomitant]
     Active Substance: POTASSIUM CHLORIDE
  6. METFORMIN [Concomitant]
     Active Substance: METFORMIN HYDROCHLORIDE
  7. POMALIDOMIDE [Concomitant]
     Active Substance: POMALIDOMIDE
  8. ACYCLOVIR. [Concomitant]
     Active Substance: ACYCLOVIR

REACTIONS (6)
  - Haemoglobin decreased [None]
  - Retroperitoneal haemorrhage [None]
  - Small intestinal obstruction [None]
  - Pulmonary embolism [None]
  - Cardiac tamponade [None]
  - Pleural effusion [None]

NARRATIVE: CASE EVENT DATE: 20180622
